FAERS Safety Report 25305447 (Version 1)
Quarter: 2025Q2

REPORT INFORMATION
  Report Type: Spontaneous
  Country: FR (occurrence: FR)
  Receive Date: 20250513
  Receipt Date: 20250513
  Transmission Date: 20250716
  Serious: Yes (Life-Threatening, Other)
  Sender: TAKEDA
  Company Number: None

PATIENT
  Age: 43 Year
  Sex: Female

DRUGS (2)
  1. BRIGATINIB [Suspect]
     Active Substance: BRIGATINIB
     Dosage: 180 MILLIGRAM, QD
     Dates: start: 20250416, end: 20250419
  2. LORLATINIB [Suspect]
     Active Substance: LORLATINIB
     Indication: Bronchial carcinoma
     Dosage: 100 MILLIGRAM, QD
     Dates: start: 20250311, end: 20250414

REACTIONS (6)
  - Interstitial lung disease [Recovering/Resolving]
  - Asthenia [Recovering/Resolving]
  - Abdominal pain [Recovering/Resolving]
  - Weight increased [Recovering/Resolving]
  - Paraesthesia [Recovering/Resolving]
  - Aphasia [Recovering/Resolving]
